FAERS Safety Report 9425970 (Version 1)
Quarter: 2013Q3

REPORT INFORMATION
  Report Type: Spontaneous
  Country: JP (occurrence: JP)
  Receive Date: 20130729
  Receipt Date: 20130729
  Transmission Date: 20140515
  Serious: Yes (Hospitalization, Other)
  Sender: FDA-Public Use
  Company Number: JP-JNJFOC-20130712731

PATIENT
  Age: 89 Year
  Sex: Female
  Weight: 44 kg

DRUGS (3)
  1. LOPEMIN [Suspect]
     Indication: DIARRHOEA
     Route: 048
  2. LACTOMIN [Interacting]
     Indication: DIARRHOEA
     Route: 048
  3. AN UNKNOWN MEDICATION [Interacting]
     Indication: DIARRHOEA
     Route: 048

REACTIONS (4)
  - Ileus paralytic [Unknown]
  - Megacolon [Unknown]
  - Enteritis infectious [Unknown]
  - Drug interaction [Unknown]
